FAERS Safety Report 18661029 (Version 1)
Quarter: 2020Q4

REPORT INFORMATION
  Report Type: Spontaneous
  Country: US (occurrence: US)
  Receive Date: 20201224
  Receipt Date: 20201224
  Transmission Date: 20210114
  Serious: Yes (Hospitalization)
  Sender: FDA-Public Use
  Company Number: None

PATIENT
  Age: 66 Year
  Sex: Male
  Weight: 115 kg

DRUGS (3)
  1. SODIUM CHLORIDE 0.9% [Concomitant]
     Active Substance: SODIUM CHLORIDE
     Dates: start: 20201223, end: 20201223
  2. IMDEVIMAB (REGN 10987) [Suspect]
     Active Substance: IMDEVIMAB
     Indication: COVID-19
     Dosage: ?          OTHER FREQUENCY:ONCE;?
     Route: 041
     Dates: start: 20201223, end: 20201223
  3. CASIRIVIMAB (REGN 10933) [Suspect]
     Active Substance: CASIRIVIMAB
     Indication: COVID-19
     Dosage: ?          OTHER FREQUENCY:ONCE;?
     Route: 041
     Dates: start: 20201223, end: 20201223

REACTIONS (3)
  - Anxiety [None]
  - Oxygen saturation decreased [None]
  - Restlessness [None]

NARRATIVE: CASE EVENT DATE: 20201223
